FAERS Safety Report 8582884-9 (Version None)
Quarter: 2012Q3

REPORT INFORMATION
  Report Type: 
  Country: None (occurrence: None)
  Receive Date: 20120727
  Receipt Date: 20120720
  Transmission Date: 20120928
  Serious: Yes (Hospitalization)
  Sender: FDA-Public Use
  Company Number: 2012-002628

PATIENT
  Age: 68 Year
  Sex: Female

DRUGS (14)
  1. CLOPIDOGREL [Concomitant]
  2. BION TEARS (DEXTRAN 70, HYPROMELLOSE) [Concomitant]
  3. VESICARE [Concomitant]
  4. CARVEDILOL [Concomitant]
  5. FUROSEMIDE [Concomitant]
  6. AMITRIPTYLINE HCL [Suspect]
     Dosage: 25 MG
     Dates: start: 20120601
  7. RABEPRAZOLE SODIUM [Concomitant]
  8. ATACAND [Concomitant]
  9. ALPRIM (TRIMETHOPRIM) [Concomitant]
  10. ACTONEL [Suspect]
     Dosage: 150 MG ONCE MONTHLY, ORAL
     Route: 048
     Dates: start: 20120530
  11. OVESTIN (ESTRIOL) [Concomitant]
  12. TAZAC (NIZATIDINE) [Concomitant]
  13. NIZORAL [Concomitant]
  14. ROSUVASTATIN [Concomitant]

REACTIONS (6)
  - URTICARIA [None]
  - RASH ERYTHEMATOUS [None]
  - INSOMNIA [None]
  - GASTROOESOPHAGEAL REFLUX DISEASE [None]
  - SYNCOPE [None]
  - DYSPEPSIA [None]
